FAERS Safety Report 5055092-6 (Version None)
Quarter: 2006Q3

REPORT INFORMATION
  Report Type: 
  Country: None (occurrence: None)
  Receive Date: 20060719
  Receipt Date: 20050307
  Transmission Date: 20061208
  Serious: No
  Sender: FDA-Public Use
  Company Number: US-AMGEN-KDL120321

PATIENT
  Age: 42 Year
  Sex: Female

DRUGS (3)
  1. PROCRIT [Suspect]
     Indication: PRE-EXISTING DISEASE
     Route: 058
     Dates: start: 20040601, end: 20041001
  2. MEDICINALPRODUCT NOT SPECIFIED BY SENDER [Concomitant]
     Dates: start: 20040601, end: 20041001
  3. MEDICINALPRODUCT NOT SPECIFIED BY SENDER [Concomitant]
     Dates: start: 20040601, end: 20041001

REACTIONS (1)
  - HAEMOGLOBIN INCREASED [None]
